FAERS Safety Report 8559686-2 (Version None)
Quarter: 2012Q3

REPORT INFORMATION
  Report Type: 
  Country: None (occurrence: None)
  Receive Date: 20120802
  Receipt Date: 20120727
  Transmission Date: 20120928
  Serious: Yes (Death)
  Sender: FDA-Public Use
  Company Number: US-ASTELLAS-2012US005741

PATIENT
  Sex: Female

DRUGS (2)
  1. ERLOTINIB HYDROCHLORIDE [Suspect]
     Indication: LUNG NEOPLASM MALIGNANT
     Dosage: 150 MG, UID/QD
     Route: 048
     Dates: start: 20120529
  2. ERLOTINIB HYDROCHLORIDE [Suspect]
     Indication: TRACHEAL CANCER

REACTIONS (4)
  - PAIN [None]
  - DRY SKIN [None]
  - ARTHRALGIA [None]
  - DEATH [None]
